FAERS Safety Report 7468939-0 (Version None)
Quarter: 2011Q2

REPORT INFORMATION
  Report Type: 
  Country: None (occurrence: None)
  Receive Date: 20110428
  Receipt Date: 20110420
  Transmission Date: 20111010
  Serious: Yes (Disabling)
  Sender: FDA-Public Use
  Company Number: 2011SP017994

PATIENT
  Sex: Male

DRUGS (1)
  1. INTRON A [Suspect]
     Indication: MALIGNANT MELANOMA
     Dates: start: 20110101

REACTIONS (7)
  - HYPOPHAGIA [None]
  - FATIGUE [None]
  - DECREASED APPETITE [None]
  - SOMNOLENCE [None]
  - WEIGHT DECREASED [None]
  - IMPAIRED WORK ABILITY [None]
  - DYSGEUSIA [None]
